FAERS Safety Report 15171122 (Version 2)
Quarter: 2018Q4

REPORT INFORMATION
  Report Type: Spontaneous
  Country: FR (occurrence: FR)
  Receive Date: 20180720
  Receipt Date: 20181023
  Transmission Date: 20190204
  Serious: Yes (Death, Other)
  Sender: FDA-Public Use
  Company Number: FR-BRISTOL-MYERS SQUIBB COMPANY-BMS-2018-064168

PATIENT
  Age: 69 Year
  Sex: Female

DRUGS (1)
  1. COUMADINE [Suspect]
     Active Substance: WARFARIN SODIUM
     Indication: ATRIAL FIBRILLATION
     Dosage: UNK
     Route: 048

REACTIONS (2)
  - Intracranial mass [Fatal]
  - Cerebral haematoma [Fatal]

NARRATIVE: CASE EVENT DATE: 20180623
